FAERS Safety Report 24527130 (Version 1)
Quarter: 2024Q4

REPORT INFORMATION
  Report Type: Report from Study
  Country: US (occurrence: US)
  Receive Date: 20241021
  Receipt Date: 20241021
  Transmission Date: 20250115
  Serious: No
  Sender: ROCHE
  Company Number: US-ROCHE-3440614

PATIENT
  Age: 75 Year
  Sex: Female

DRUGS (14)
  1. COTELLIC [Suspect]
     Active Substance: COBIMETINIB
     Indication: Pancreatic carcinoma
     Route: 065
  2. VITAMIN B12 [Concomitant]
     Active Substance: CYANOCOBALAMIN
  3. HYDROCORTISONE ACETATE [Concomitant]
     Active Substance: HYDROCORTISONE ACETATE
  4. PEPTO-BISMOL [Concomitant]
     Active Substance: BISMUTH SUBSALICYLATE
  5. CHOLECALCIFEROL [Concomitant]
     Active Substance: CHOLECALCIFEROL
  6. ROSUVASTATIN [Concomitant]
     Active Substance: ROSUVASTATIN
  7. GABAPENTIN [Concomitant]
     Active Substance: GABAPENTIN
  8. ASPIRIN [Concomitant]
     Active Substance: ASPIRIN
  9. ZOFRAN [Concomitant]
     Active Substance: ONDANSETRON HYDROCHLORIDE
  10. AMLODIPINE [Concomitant]
     Active Substance: AMLODIPINE BESYLATE
  11. TRAZODONE [Concomitant]
     Active Substance: TRAZODONE HYDROCHLORIDE
  12. LIBRAX [Concomitant]
     Active Substance: CHLORDIAZEPOXIDE HYDROCHLORIDE\CLIDINIUM BROMIDE
  13. PREMARIN [Concomitant]
     Active Substance: ESTROGENS, CONJUGATED
  14. FISH OIL\OMEGA-3 FATTY ACIDS [Concomitant]
     Active Substance: FISH OIL\OMEGA-3 FATTY ACIDS

REACTIONS (17)
  - Off label use [Unknown]
  - Hypertension [Unknown]
  - Rash [Unknown]
  - Rash [Unknown]
  - Cystitis [Unknown]
  - Osteoarthritis [Unknown]
  - Pterygium [Unknown]
  - Dysuria [Unknown]
  - Chest pain [Unknown]
  - Asthenia [Unknown]
  - Vision blurred [Unknown]
  - Fatigue [Unknown]
  - Red blood cell count decreased [Unknown]
  - Haemoglobin decreased [Unknown]
  - Haematocrit decreased [Unknown]
  - Mean cell haemoglobin concentration decreased [Unknown]
  - Red cell distribution width decreased [Unknown]

NARRATIVE: CASE EVENT DATE: 20230914
